FAERS Safety Report 5828487-8 (Version None)
Quarter: 2008Q3

REPORT INFORMATION
  Report Type: 
  Country: None (occurrence: None)
  Receive Date: 20080729
  Receipt Date: 20080715
  Transmission Date: 20090109
  Serious: Yes (Hospitalization, Disabling)
  Sender: FDA-Public Use
  Company Number: 2008001049

PATIENT
  Age: 63 Year
  Sex: Male
  Weight: 53 kg

DRUGS (2)
  1. ERLOTINIB (ERLOTINIB) (TABLET) (ERLOTINIB) [Suspect]
     Indication: NON-SMALL CELL LUNG CANCER
     Dosage: 150 MG QD ORAL
     Route: 048
     Dates: start: 20080608
  2. BEVACIZUMAB (INJECTION FOR INFUSION) [Suspect]
     Indication: NON-SMALL CELL LUNG CANCER
     Dosage: 900 MG, Q3W, INTRAVENOUS
     Route: 042
     Dates: start: 20080208

REACTIONS (2)
  - ANAEMIA [None]
  - ASTHENIA [None]
